FAERS Safety Report 8694186 (Version 5)
Quarter: 2012Q4

REPORT INFORMATION
  Report Type: 
  Country: JP (occurrence: JP)
  Receive Date: 20120731
  Receipt Date: 20121031
  Transmission Date: 20130627
  Serious: Yes (Hospitalization, Disabling, Other)
  Sender: FDA-Public Use
  Company Number: JP-SANOFI-AVENTIS-2012SA052285

PATIENT
  Age: 66 Year
  Sex: Male
  Weight: 66 kg

DRUGS (3)
  1. TAXOTERE [Suspect]
     Indication: PROSTATE CANCER
     Dosage: Dose: 40 mg/body
     Route: 042
     Dates: start: 20110119, end: 20120721
  2. DEXAMETHASONE [Concomitant]
     Route: 048
     Dates: start: 20110119, end: 20110811
  3. ESTRACYT [Concomitant]
     Route: 048
     Dates: start: 20110119, end: 20110213

REACTIONS (9)
  - Blindness unilateral [Recovered/Resolved with Sequelae]
  - Optic neuritis [Unknown]
  - Optic ischaemic neuropathy [Unknown]
  - Blindness [Recovered/Resolved with Sequelae]
  - Visual field defect [Not Recovered/Not Resolved]
  - Visual acuity reduced [Unknown]
  - Pneumonia pneumococcal [Recovered/Resolved]
  - Septic shock [Recovered/Resolved]
  - Visual acuity reduced [Unknown]
